FAERS Safety Report 21637470 (Version 1)
Quarter: 2022Q4

REPORT INFORMATION
  Report Type: Other
  Country: CA (occurrence: None)
  Receive Date: 20221124
  Receipt Date: 20221124
  Transmission Date: 20230113
  Serious: Yes (Other)
  Sender: FDA-Public Use
  Company Number: CA-ROCHE-3223851

PATIENT
  Sex: Male

DRUGS (7)
  1. RITUXIMAB [Suspect]
     Active Substance: RITUXIMAB
     Indication: Diffuse large B-cell lymphoma stage IV
     Dosage: R-MINI-CHOP WAS GIVEN IN SIX CYCLES, EACH SEPARATED BY 3 WEEKS
     Route: 041
  2. CYCLOPHOSPHAMIDE [Suspect]
     Active Substance: CYCLOPHOSPHAMIDE
     Indication: Diffuse large B-cell lymphoma stage IV
     Dosage: R-MINI-CHOP WAS GIVEN IN SIX CYCLES, EACH SEPARATED BY 3 WEEKS
     Route: 065
  3. DOXORUBICIN [Suspect]
     Active Substance: DOXORUBICIN
     Indication: Diffuse large B-cell lymphoma stage IV
     Dosage: R-MINI-CHOP WAS GIVEN IN SIX CYCLES, EACH SEPARATED BY 3 WEEKS
     Route: 065
  4. VINCRISTINE [Suspect]
     Active Substance: VINCRISTINE
     Indication: Diffuse large B-cell lymphoma stage IV
     Dosage: R-MINI-CHOP WAS GIVEN IN SIX CYCLES, EACH SEPARATED BY 3 WEEKS
     Route: 065
  5. PREDNISOLONE [Suspect]
     Active Substance: PREDNISOLONE
     Indication: Diffuse large B-cell lymphoma stage IV
     Dosage: R-MINI-CHOP WAS GIVEN IN SIX CYCLES, EACH SEPARATED BY 3 WEEKS
     Route: 065
  6. DEXAMETHASONE [Concomitant]
     Active Substance: DEXAMETHASONE
  7. FILGRASTIM [Concomitant]
     Active Substance: FILGRASTIM
     Indication: Prophylaxis

REACTIONS (4)
  - Candida infection [Unknown]
  - Diarrhoea [Unknown]
  - Pleural effusion [Unknown]
  - Device related thrombosis [Unknown]
